FAERS Safety Report 14457228 (Version 2)
Quarter: 2018Q1

REPORT INFORMATION
  Report Type: Spontaneous
  Country: JP (occurrence: JP)
  Receive Date: 20180130
  Receipt Date: 20180207
  Transmission Date: 20180509
  Serious: Yes (Other)
  Sender: FDA-Public Use
  Company Number: JP-ASTRAZENECA-2018SE11021

PATIENT
  Age: 84 Year
  Sex: Male

DRUGS (3)
  1. UFT [Concomitant]
     Active Substance: TEGAFUR\URACIL
  2. UZEL [Concomitant]
     Active Substance: LEUCOVORIN CALCIUM
  3. CASODEX [Suspect]
     Active Substance: BICALUTAMIDE
     Indication: PROSTATE CANCER
     Route: 048

REACTIONS (2)
  - Colon cancer [Unknown]
  - Product use issue [Unknown]
